FAERS Safety Report 18139252 (Version 1)
Quarter: 2020Q3

REPORT INFORMATION
  Report Type: Spontaneous
  Country: IN (occurrence: IN)
  Receive Date: 20200812
  Receipt Date: 20200812
  Transmission Date: 20201103
  Serious: Yes (Other)
  Sender: FDA-Public Use
  Company Number: IN-ACCORD-194938

PATIENT
  Age: 3 Year
  Sex: Female

DRUGS (1)
  1. TOPOTECAN [Suspect]
     Active Substance: TOPOTECAN HYDROCHLORIDE
     Indication: RETINOBLASTOMA
     Dosage: 1 MG IN 0.1 ML, REPEATED INTRAVITREALLY IN THE DOSE OF 20 UGM IN 0.1 ML
     Route: 050

REACTIONS (5)
  - Lip haemorrhage [Unknown]
  - Pyrexia [Unknown]
  - Swelling of eyelid [Unknown]
  - Mouth ulceration [Unknown]
  - Erythema multiforme [Unknown]
